FAERS Safety Report 7818167-1 (Version None)
Quarter: 2011Q4

REPORT INFORMATION
  Report Type: 
  Country: None (occurrence: None)
  Receive Date: 20111017
  Receipt Date: 20111004
  Transmission Date: 20120403
  Serious: Yes (Death, Hospitalization, Other)
  Sender: FDA-Public Use
  Company Number: US-BAYER-200940289NA

PATIENT
  Age: 68 Year
  Sex: Male
  Weight: 113.38 kg

DRUGS (24)
  1. VERAPAMIL [Concomitant]
     Dosage: 80 MG, QD
     Route: 048
     Dates: start: 20030603
  2. POTASSIUM CHLORIDE [Concomitant]
  3. FENTANYL [Concomitant]
     Dosage: 40 ML, UNK
     Route: 042
     Dates: start: 20050701
  4. MORPHINE [Concomitant]
     Dosage: UNK UNK, UNK
     Route: 042
     Dates: start: 20050701
  5. BACITRACIN [Concomitant]
     Dosage: 50000 U, UNK
     Route: 042
     Dates: start: 20050701, end: 20050701
  6. ALBUTEROL INHALER [Concomitant]
     Dosage: 90 MCG, 2 PUFFS QID (LONG TERM USE)
  7. TRASYLOL [Suspect]
     Indication: ATRIAL SEPTAL DEFECT REPAIR
     Dosage: 50 ML/PER HOUR
     Route: 042
     Dates: start: 20050701, end: 20050701
  8. CEFAZOLIN [Concomitant]
     Dosage: 1 G, UNK
     Route: 042
     Dates: start: 20050701, end: 20050701
  9. PANCURONIUM [Concomitant]
     Dosage: UNK UNK, UNK
     Route: 042
     Dates: start: 20050701, end: 20050701
  10. HEPARIN [Concomitant]
     Dosage: UNK UNK, UNK
     Route: 042
     Dates: start: 20050701
  11. PROPOFOL [Concomitant]
     Dosage: UNK UNK, UNK
     Route: 042
     Dates: start: 20050701, end: 20050701
  12. ^INHALER^, ^NEBULIZER^ [Concomitant]
  13. COUMADIN [Concomitant]
     Dosage: 5 MG, QD
     Dates: start: 20030106, end: 20050626
  14. ETOMIDATE [Concomitant]
     Dosage: 12 MG, UNK
     Route: 042
     Dates: start: 20050701, end: 20050701
  15. TRASYLOL [Suspect]
     Indication: CORONARY ARTERY BYPASS
     Dosage: BOLUS
     Route: 042
     Dates: start: 20050701, end: 20050701
  16. TRASYLOL [Suspect]
     Indication: TRICUSPID VALVE REPAIR
  17. ZYRTEC [Concomitant]
     Dosage: 10 MG, QD
     Route: 048
     Dates: start: 20040501
  18. ALBUTEROL [Concomitant]
     Dosage: 0.083 %, QID AS NEEDED (LONG TERM USE)
  19. LASIX [Concomitant]
     Dosage: 10 MG, UNK
     Route: 042
     Dates: start: 20050701
  20. VECURONIUM BROMIDE [Concomitant]
     Dosage: UNK UNK, UNK
     Route: 042
     Dates: start: 20050701
  21. FLOVENT [Concomitant]
     Dosage: 110 MCG PER DOSE (2 PUFFS BID)
  22. TRASYLOL [Suspect]
     Indication: CARDIAC OPERATION
  23. LASIX [Concomitant]
  24. VERSED [Concomitant]
     Dosage: 10 MG, UNK
     Route: 042
     Dates: start: 20050701

REACTIONS (13)
  - STRESS [None]
  - FEAR [None]
  - RENAL FAILURE [None]
  - RENAL INJURY [None]
  - MULTI-ORGAN FAILURE [None]
  - ANXIETY [None]
  - ANHEDONIA [None]
  - UNEVALUABLE EVENT [None]
  - PAIN [None]
  - RENAL IMPAIRMENT [None]
  - INJURY [None]
  - DEATH [None]
  - EMOTIONAL DISTRESS [None]
